FAERS Safety Report 8199616-9 (Version None)
Quarter: 2012Q1

REPORT INFORMATION
  Report Type: 
  Country: None (occurrence: None)
  Receive Date: 20120310
  Receipt Date: 20120301
  Transmission Date: 20120608
  Serious: Yes (Other)
  Sender: FDA-Public Use
  Company Number: US-VERTEX PHARMACEUTICALS INC.-AE-2012-003034

PATIENT
  Sex: Female
  Weight: 68.1 kg

DRUGS (3)
  1. PEGASYS [Concomitant]
     Indication: HEPATITIS C
     Route: 058
     Dates: start: 20111029, end: 20111213
  2. COPEGUS [Concomitant]
     Indication: HEPATITIS C
     Dates: start: 20111029, end: 20111213
  3. INCIVEK [Suspect]
     Indication: HEPATITIS C
     Dates: start: 20111029, end: 20111213

REACTIONS (8)
  - ANORECTAL DISCOMFORT [None]
  - RASH PRURITIC [None]
  - HEADACHE [None]
  - HAEMORRHOIDS [None]
  - UPPER RESPIRATORY TRACT CONGESTION [None]
  - RETINAL ARTERY THROMBOSIS [None]
  - LOCAL SWELLING [None]
  - FATIGUE [None]
